FAERS Safety Report 8145291-9 (Version None)
Quarter: 2012Q1

REPORT INFORMATION
  Report Type: 
  Country: None (occurrence: None)
  Receive Date: 20120217
  Receipt Date: 20120213
  Transmission Date: 20120608
  Serious: Yes (Death, Disabling)
  Sender: FDA-Public Use
  Company Number: US-GILEAD-2012-0049502

PATIENT
  Sex: Female

DRUGS (19)
  1. COMPAZINE SPANSULE [Concomitant]
  2. ATROPINE [Concomitant]
  3. BACTRIM [Concomitant]
  4. MORPHINE [Concomitant]
  5. AGGRENOX [Concomitant]
  6. INDERAL [Concomitant]
  7. LEVOTHROID [Concomitant]
  8. FENTANYL [Concomitant]
  9. LETAIRIS [Suspect]
     Indication: SYSTEMIC SCLEROSIS
  10. PREDNISONE [Concomitant]
  11. ONDANSETRON [Concomitant]
  12. MAXZIDE [Concomitant]
  13. LETAIRIS [Suspect]
     Indication: PULMONARY HYPERTENSION
     Dosage: 5 MG, UNK
     Route: 048
     Dates: start: 20111223, end: 20120103
  14. MEVACOR [Concomitant]
  15. DURAGESIC-100 [Concomitant]
  16. FLONASE [Concomitant]
  17. LOVASTATIN [Concomitant]
  18. ATIVAN [Concomitant]
  19. LASIX [Concomitant]

REACTIONS (5)
  - RESPIRATORY FAILURE [None]
  - SYSTEMIC SCLEROSIS [None]
  - PULMONARY HYPERTENSION [None]
  - COR PULMONALE [None]
  - MALAISE [None]
